FAERS Safety Report 16417225 (Version 2)
Quarter: 2019Q2

REPORT INFORMATION
  Report Type: Spontaneous
  Country: JP (occurrence: JP)
  Receive Date: 20190611
  Receipt Date: 20190621
  Transmission Date: 20190711
  Serious: Yes (Death, Other)
  Sender: FDA-Public Use
  Company Number: JP-NAPPMUNDI-GBR-2019-0066221

PATIENT
  Age: 78 Year
  Sex: Male

DRUGS (8)
  1. OPSO [Suspect]
     Active Substance: MORPHINE HYDROCHLORIDE
     Indication: CANCER PAIN
     Dosage: 5 MG, PRN
     Route: 048
     Dates: start: 20190329, end: 20190402
  2. BAYASPIRIN [Concomitant]
     Active Substance: ASPIRIN
     Dosage: 100 MG, DAILY
     Route: 048
     Dates: start: 20190326, end: 20190401
  3. OXYCONTIN [Suspect]
     Active Substance: OXYCODONE HYDROCHLORIDE
     Indication: CANCER PAIN
     Dosage: 20 MG, DAILY
     Route: 048
     Dates: start: 20190328, end: 20190330
  4. PREDONINE [Concomitant]
     Active Substance: PREDNISOLONE
     Indication: IDIOPATHIC INTERSTITIAL PNEUMONIA
     Dosage: 5 MG, DAILY
     Route: 048
     Dates: start: 20190326, end: 20190401
  5. OXYCONTIN [Suspect]
     Active Substance: OXYCODONE HYDROCHLORIDE
     Indication: CANCER PAIN
     Dosage: 40 MG, DAILY
     Route: 048
     Dates: start: 20190330, end: 20190331
  6. CELECOX [Concomitant]
     Active Substance: CELECOXIB
     Indication: NEOPLASM MALIGNANT
     Dosage: 200 MG, DAILY
     Dates: start: 20190326, end: 20190401
  7. BIO-THREE [Concomitant]
     Active Substance: HERBALS
     Dosage: 3 DF, DAILY
     Route: 048
     Dates: start: 20190326, end: 20190401
  8. METFORMIN HYDROCHLORIDE. [Concomitant]
     Active Substance: METFORMIN HYDROCHLORIDE
     Indication: TYPE 2 DIABETES MELLITUS
     Dosage: 500 MG, DAILY
     Dates: start: 20190326, end: 20190401

REACTIONS (4)
  - Nausea [Not Recovered/Not Resolved]
  - Somnolence [Recovering/Resolving]
  - Respiratory depression [Recovering/Resolving]
  - Pancreatic carcinoma [Fatal]

NARRATIVE: CASE EVENT DATE: 20190329
